FAERS Safety Report 7353465-X (Version None)
Quarter: 2011Q1

REPORT INFORMATION
  Report Type: 
  Country: None (occurrence: None)
  Receive Date: 20110309
  Receipt Date: 20110309
  Transmission Date: 20110831
  Serious: No
  Sender: FDA-Public Use
  Company Number: None

PATIENT
  Sex: Female
  Weight: 65.7716 kg

DRUGS (1)
  1. CLOZAPINE [Suspect]

REACTIONS (4)
  - ILL-DEFINED DISORDER [None]
  - MUSCLE ATROPHY [None]
  - TIC [None]
  - POST PROCEDURAL COMPLICATION [None]
